FAERS Safety Report 4448445-8 (Version None)
Quarter: 2004Q3

REPORT INFORMATION
  Report Type: 
  Country: None (occurrence: None)
  Receive Date: 20040729
  Receipt Date: 20040430
  Transmission Date: 20050211
  Serious: Yes (Other)
  Sender: FDA-Public Use
  Company Number: US-JNJFOC-20040500610

PATIENT
  Age: 42 Year
  Sex: Male

DRUGS (4)
  1. RISPERDAL CONSTA [Suspect]
     Indication: DRUG USE FOR UNKNOWN INDICATION
     Dosage: 25 MG, 1 IN 2 WEEK, INTRA-MUSCULAR
     Route: 030
     Dates: start: 20040413
  2. DEPAKOTE [Concomitant]
  3. VALIUM [Concomitant]
  4. KEPPRA [Concomitant]

REACTIONS (2)
  - CONVULSION [None]
  - INSOMNIA [None]
